FAERS Safety Report 21832258 (Version 1)
Quarter: 2023Q1

REPORT INFORMATION
  Report Type: Spontaneous
  Country: DE (occurrence: DE)
  Receive Date: 20230106
  Receipt Date: 20230106
  Transmission Date: 20230417
  Serious: Yes (Hospitalization)
  Sender: FDA-Public Use
  Company Number: DE-STADA-262155

PATIENT
  Age: 55 Year
  Sex: Male

DRUGS (2)
  1. DIMETHYL FUMARATE [Suspect]
     Active Substance: DIMETHYL FUMARATE
     Indication: Relapsing-remitting multiple sclerosis
     Dosage: 480 MILLIGRAM, QD
     Route: 065
     Dates: start: 202004, end: 202101
  2. OCRELIZUMAB [Suspect]
     Active Substance: OCRELIZUMAB
     Indication: Relapsing-remitting multiple sclerosis
     Dosage: 300 MILLIGRAM
     Route: 065
     Dates: start: 201803

REACTIONS (4)
  - Urosepsis [Recovering/Resolving]
  - Lymphopenia [Unknown]
  - Cytomegalovirus infection [Recovering/Resolving]
  - Meningitis [Recovering/Resolving]
